FAERS Safety Report 14438557 (Version 1)
Quarter: 2018Q1

REPORT INFORMATION
  Report Type: Other
  Country: HU (occurrence: HU)
  Receive Date: 20180125
  Receipt Date: 20180125
  Transmission Date: 20180509
  Serious: Yes (Hospitalization, Other)
  Sender: FDA-Public Use
  Company Number: HU-KRKA, D.D., NOVO MESTO-2040784

PATIENT
  Age: 58 Year
  Sex: Female

DRUGS (10)
  1. DOXAZOSIN [Suspect]
     Active Substance: DOXAZOSIN\DOXAZOSIN MESYLATE
     Route: 065
     Dates: start: 20040325, end: 20110224
  2. URAPIDIL [Suspect]
     Active Substance: URAPIDIL
     Route: 065
     Dates: start: 20040223, end: 20140403
  3. ENALAPRIL MALEATE. [Suspect]
     Active Substance: ENALAPRIL MALEATE
     Indication: HYPERTENSION
     Route: 065
     Dates: start: 20040223, end: 20131213
  4. CARVEDILOL. [Suspect]
     Active Substance: CARVEDILOL
     Route: 065
     Dates: start: 20050923, end: 20140403
  5. METOPROLOL. [Suspect]
     Active Substance: METOPROLOL
     Route: 065
     Dates: start: 20040223, end: 20050829
  6. GLYCERYL TRINITRATE [Suspect]
     Active Substance: NITROGLYCERIN
     Route: 065
     Dates: start: 20090220, end: 20140403
  7. MINOXIDIL. [Suspect]
     Active Substance: MINOXIDIL
     Route: 065
     Dates: start: 20110104, end: 20140403
  8. NIFEDIPINE. [Suspect]
     Active Substance: NIFEDIPINE
     Route: 065
     Dates: start: 20090220, end: 20120321
  9. AMLODIPINE [Suspect]
     Active Substance: AMLODIPINE BESYLATE
     Route: 065
     Dates: start: 20040223, end: 20140403
  10. PERINDOPRIL ERBUMINE. [Suspect]
     Active Substance: PERINDOPRIL ERBUMINE
     Route: 065

REACTIONS (1)
  - Drug ineffective [Unknown]
